FAERS Safety Report 5907012-7 (Version None)
Quarter: 2008Q4

REPORT INFORMATION
  Report Type: 
  Country: None (occurrence: None)
  Receive Date: 20081001
  Receipt Date: 20081001
  Transmission Date: 20090506
  Serious: Yes (Life-Threatening, Hospitalization, Congenital Anomaly)
  Sender: FDA-Public Use
  Company Number: None

PATIENT
  Age: 25 Year
  Sex: Female
  Weight: 81.6475 kg

DRUGS (1)
  1. NUVARING [Suspect]
     Indication: CONTRACEPTION
     Dosage: 1 NUVARING INSERT 3 FOR WEEKS VAG
     Route: 067
     Dates: start: 20071128, end: 20080114

REACTIONS (1)
  - MYOCARDIAL INFARCTION [None]
